FAERS Safety Report 23420104 (Version 5)
Quarter: 2024Q1

REPORT INFORMATION
  Report Type: Spontaneous
  Country: US (occurrence: US)
  Receive Date: 20240119
  Receipt Date: 20240216
  Transmission Date: 20240410
  Serious: No
  Sender: FDA-Public Use
  Company Number: US-BIOGEN-2020BI00900720

PATIENT
  Age: 53 Year
  Sex: Female

DRUGS (1)
  1. TYSABRI [Suspect]
     Active Substance: NATALIZUMAB
     Indication: Crohn^s disease
     Route: 050
     Dates: start: 20200217

REACTIONS (4)
  - Prescribed underdose [Not Recovered/Not Resolved]
  - Motor dysfunction [Unknown]
  - Slow speech [Unknown]
  - Tremor [Unknown]

NARRATIVE: CASE EVENT DATE: 20240101
